FAERS Safety Report 8993605 (Version 1)
Quarter: 2013Q1

REPORT INFORMATION
  Report Type: Other
  Country: GB (occurrence: GB)
  Receive Date: 20130102
  Receipt Date: 20130102
  Transmission Date: 20140127
  Serious: Yes (Other)
  Sender: FDA-Public Use
  Company Number: GB-WATSON-2012-22743

PATIENT
  Sex: Female

DRUGS (1)
  1. PIOGLITAZONE (UNKNOWN) [Suspect]
     Indication: DIABETES MELLITUS
     Dosage: UNKNOWN
     Route: 065

REACTIONS (2)
  - Retinal disorder [Unknown]
  - Cystoid macular oedema [Unknown]
